FAERS Safety Report 20480219 (Version 1)
Quarter: 2022Q1

REPORT INFORMATION
  Report Type: Spontaneous
  Country: US (occurrence: None)
  Receive Date: 20220215
  Receipt Date: 20220215
  Transmission Date: 20220424
  Serious: Yes (Other)
  Sender: FDA-Public Use
  Company Number: None

PATIENT
  Age: 71 Year
  Sex: Female
  Weight: 75.7 kg

DRUGS (2)
  1. XARELTO [Suspect]
     Active Substance: RIVAROXABAN
     Indication: Atrial fibrillation
     Dosage: FREQUENCY : DAILY;?
     Route: 048
     Dates: start: 20220101, end: 20220214
  2. XARELTO [Concomitant]
     Active Substance: RIVAROXABAN
     Dates: start: 20220101, end: 20220214

REACTIONS (3)
  - Epistaxis [None]
  - Breast discharge [None]
  - Breast haemorrhage [None]

NARRATIVE: CASE EVENT DATE: 20220211
